FAERS Safety Report 5389048-0 (Version None)
Quarter: 2007Q3

REPORT INFORMATION
  Report Type: 
  Country: None (occurrence: None)
  Receive Date: 20070717
  Receipt Date: 20070706
  Transmission Date: 20080115
  Serious: Yes (Hospitalization)
  Sender: FDA-Public Use
  Company Number: FR-NOVOPROD-264808

PATIENT
  Age: 72 Year
  Sex: Male
  Weight: 80 kg

DRUGS (8)
  1. NOVOLOG MIX 70/30 [Suspect]
     Indication: INSULIN-REQUIRING TYPE II DIABETES MELLITUS
     Route: 058
     Dates: end: 20061225
  2. NOVORAPID [Suspect]
     Indication: DIABETES MELLITUS
     Dates: end: 20061229
  3. COVERSYL                           /00790701/ [Suspect]
     Indication: DRUG USE FOR UNKNOWN INDICATION
     Dates: start: 20061129, end: 20061229
  4. AMOXICILLIN [Suspect]
     Indication: DRUG USE FOR UNKNOWN INDICATION
     Dates: start: 20061201, end: 20061215
  5. DIGOXIN [Concomitant]
     Route: 048
  6. LASILIX                            /00032601/ [Concomitant]
     Route: 048
  7. BUFLOMEDIL [Concomitant]
     Dates: start: 20061129
  8. ALLOPURINOL [Concomitant]
     Indication: GOUT
     Dates: start: 20061119

REACTIONS (1)
  - DRUG RASH WITH EOSINOPHILIA AND SYSTEMIC SYMPTOMS [None]
